FAERS Safety Report 23872682 (Version 1)
Quarter: 2024Q2

REPORT INFORMATION
  Report Type: Spontaneous
  Country: US (occurrence: US)
  Receive Date: 20240520
  Receipt Date: 20240520
  Transmission Date: 20240716
  Serious: No
  Sender: FDA-Public Use
  Company Number: US-PADAGIS-2024PAD00821

PATIENT

DRUGS (14)
  1. LEVOCETIRIZINE DIHYDROCHLORIDE [Suspect]
     Active Substance: LEVOCETIRIZINE DIHYDROCHLORIDE
     Indication: Urticaria chronic
     Dosage: 5 MG, QID
     Route: 065
  2. CETIRIZINE HYDROCHLORIDE [Suspect]
     Active Substance: CETIRIZINE HYDROCHLORIDE
     Indication: Urticaria chronic
     Dosage: 10 MG, QID
     Route: 065
  3. CYCLOSPORINE [Suspect]
     Active Substance: CYCLOSPORINE
     Indication: Urticaria chronic
     Dosage: 100 MG (100/150 MMHG), BID
     Route: 065
  4. FEXOFENADINE [Suspect]
     Active Substance: FEXOFENADINE HYDROCHLORIDE
     Indication: Urticaria chronic
     Dosage: 180 MG, QID
     Route: 065
  5. HYDROXYZINE [Suspect]
     Active Substance: HYDROXYZINE HYDROCHLORIDE
     Indication: Urticaria chronic
     Dosage: 50 MG AT NIGHT
     Route: 065
  6. DIPHENHYDRAMINE [Suspect]
     Active Substance: DIPHENHYDRAMINE
     Indication: Urticaria chronic
     Dosage: 25 MG AT NIGHT
     Route: 065
  7. CIMETIDINE [Suspect]
     Active Substance: CIMETIDINE
     Indication: Urticaria chronic
     Dosage: 400 MG, BID
     Route: 065
  8. OMALIZUMAB [Concomitant]
     Active Substance: OMALIZUMAB
     Indication: Urticaria chronic
     Dosage: 300 MG (EVERY 4 WEEKS)
     Route: 065
  9. OMALIZUMAB [Concomitant]
     Active Substance: OMALIZUMAB
     Dosage: 300 MG (EVERY 2 WEEKS)
     Route: 065
  10. HYDROXYCHLOROQUINE [Concomitant]
     Active Substance: HYDROXYCHLOROQUINE
     Indication: Urticaria chronic
     Dosage: 200 MG, QD
     Route: 065
  11. MYCOPHENOLATE MOFETIL [Concomitant]
     Active Substance: MYCOPHENOLATE MOFETIL
     Indication: Urticaria chronic
     Dosage: 1000 MG, BID
     Route: 065
  12. DAPSONE [Concomitant]
     Active Substance: DAPSONE
     Indication: Urticaria chronic
     Dosage: 100 MG, QD
     Route: 065
  13. SULFASALAZINE [Concomitant]
     Active Substance: SULFASALAZINE
     Indication: Urticaria chronic
     Dosage: 1000 MG, BID
     Route: 065
  14. PREDNISONE [Concomitant]
     Active Substance: PREDNISONE
     Indication: Urticaria chronic
     Dosage: UP TO 40 MG, QD
     Route: 065

REACTIONS (4)
  - Hirsutism [None]
  - Hypertension [None]
  - Treatment failure [Unknown]
  - Product use in unapproved indication [Unknown]
